FAERS Safety Report 18540711 (Version 1)
Quarter: 2020Q4

REPORT INFORMATION
  Report Type: Spontaneous
  Country: US (occurrence: US)
  Receive Date: 20201124
  Receipt Date: 20201124
  Transmission Date: 20210114
  Serious: No
  Sender: FDA-Public Use
  Company Number: US-JNJFOC-20201132996

PATIENT
  Sex: Female
  Weight: 58.97 kg

DRUGS (5)
  1. TOPAMAX [Suspect]
     Active Substance: TOPIRAMATE
     Indication: FIBROMYALGIA
  2. CLONAZEPAM. [Suspect]
     Active Substance: CLONAZEPAM
     Indication: ANXIETY
     Route: 048
  3. LYRICA [Suspect]
     Active Substance: PREGABALIN
     Indication: FIBROMYALGIA
     Route: 048
  4. TOPAMAX [Suspect]
     Active Substance: TOPIRAMATE
     Indication: MIGRAINE
     Route: 048
  5. TOPAMAX [Suspect]
     Active Substance: TOPIRAMATE
     Indication: NEURALGIA

REACTIONS (3)
  - Dizziness [Recovering/Resolving]
  - Wrong technique in product usage process [Unknown]
  - Somnolence [Unknown]
